FAERS Safety Report 11342378 (Version 2)
Quarter: 2015Q3

REPORT INFORMATION
  Report Type: Spontaneous
  Country: CH (occurrence: CH)
  Receive Date: 20150805
  Receipt Date: 20150813
  Transmission Date: 20151125
  Serious: Yes (Other)
  Sender: FDA-Public Use
  Company Number: CH-ASTRAZENECA-2015SE74719

PATIENT
  Sex: Female
  Weight: 59 kg

DRUGS (8)
  1. EXEMESTANE. [Concomitant]
     Active Substance: EXEMESTANE
     Dates: start: 20120217, end: 20120724
  2. HALAVEN [Concomitant]
     Active Substance: ERIBULIN MESYLATE
     Dates: start: 201209, end: 201309
  3. NOLVADEX [Suspect]
     Active Substance: TAMOXIFEN CITRATE
     Indication: BREAST CANCER
     Route: 048
     Dates: start: 20131127
  4. TUMORREDUCTIVE THERAPY WITH SIRT [Concomitant]
     Dates: start: 20141120
  5. FASLODEX [Suspect]
     Active Substance: FULVESTRANT
     Route: 030
     Dates: start: 20100701
  6. AFINITOR [Concomitant]
     Active Substance: EVEROLIMUS
     Dates: start: 20120217, end: 20120724
  7. ENDOXAN [Concomitant]
     Active Substance: CYCLOPHOSPHAMIDE
     Dates: start: 20130924, end: 20131105
  8. METHOTREXATE (METHOTREXATE SODIUM) [Concomitant]
     Active Substance: METHOTREXATE SODIUM
     Dates: start: 20130924, end: 20131105

REACTIONS (3)
  - Malignant ascites [Unknown]
  - Polyarthritis [Unknown]
  - Depression [Unknown]
